FAERS Safety Report 23961640 (Version 1)
Quarter: 2024Q2

REPORT INFORMATION
  Report Type: Spontaneous
  Country: US (occurrence: None)
  Receive Date: 20240610
  Receipt Date: 20240610
  Transmission Date: 20240716
  Serious: Yes (Hospitalization)
  Sender: FDA-Public Use
  Company Number: None

PATIENT
  Sex: Female

DRUGS (8)
  1. REPATHA [Suspect]
     Active Substance: EVOLOCUMAB
     Indication: Hyperlipidaemia
     Dosage: OTHER QUANTITY : 1 PEN ;?FREQUENCY : EVERY OTHER WEEK;?
     Route: 058
     Dates: start: 20210722
  2. BAYER CHILD CHW [Concomitant]
  3. ELIQUIS [Concomitant]
     Active Substance: APIXABAN
  4. FISH OIL [Concomitant]
  5. LISINOPRIL AND HYDROCHLOROTHIAZIDE [Concomitant]
     Active Substance: HYDROCHLOROTHIAZIDE\LISINOPRIL
  6. METFORMIN [Concomitant]
  7. OZEMPIC [Concomitant]
     Active Substance: SEMAGLUTIDE
  8. VYTORIN [Concomitant]

REACTIONS (2)
  - Coronary artery bypass [None]
  - Therapy interrupted [None]
